FAERS Safety Report 8224233-1 (Version None)
Quarter: 2012Q1

REPORT INFORMATION
  Report Type: 
  Country: None (occurrence: None)
  Receive Date: 20120321
  Receipt Date: 20120312
  Transmission Date: 20120608
  Serious: Yes (Other)
  Sender: FDA-Public Use
  Company Number: US-CUBIST-2012S1000264

PATIENT
  Age: 63 Year
  Sex: Male

DRUGS (4)
  1. CUBICIN [Suspect]
     Indication: BACTERAEMIA
  2. ALL OTHER THERAPEUTIC PRODUCTS [Concomitant]
     Indication: PRODUCT USED FOR UNKNOWN INDICATION
     Dosage: DOSE UNIT:U
  3. CUBICIN [Suspect]
     Indication: ENDOCARDITIS
  4. CUBICIN [Suspect]
     Indication: SEPSIS

REACTIONS (2)
  - HAEMOLYSIS [None]
  - HYPERSENSITIVITY [None]
